FAERS Safety Report 9740116 (Version 2)
Quarter: 2014Q2

REPORT INFORMATION
  Report Type: Spontaneous
  Country: IT (occurrence: IT)
  Receive Date: 20131209
  Receipt Date: 20140424
  Transmission Date: 20141212
  Serious: Yes (Hospitalization)
  Sender: FDA-Public Use
  Company Number: IT-TEVA-448027ISR

PATIENT
  Age: 76 Year
  Sex: Male

DRUGS (6)
  1. CARBOLITHIUM 300 MG [Suspect]
     Indication: BIPOLAR DISORDER
     Dosage: 600 MILLIGRAM DAILY;
     Route: 048
     Dates: start: 20131010, end: 20131030
  2. LOBIVON [Concomitant]
     Indication: HYPERTENSION
     Dosage: 1.25 MILLIGRAM DAILY;
     Route: 048
     Dates: start: 20120101, end: 20131030
  3. CARBOLITHIUM 150 MG [Concomitant]
     Indication: BIPOLAR DISORDER
     Dosage: 450 MILLIGRAM DAILY;
     Route: 048
     Dates: start: 20120101, end: 20131009
  4. KARVEA 150 MG [Concomitant]
     Indication: HYPERTENSION
     Dosage: 150 MILLIGRAM DAILY;
     Route: 048
     Dates: start: 20120101, end: 20131030
  5. SURMONTIL 25MG [Concomitant]
     Indication: BIPOLAR DISORDER
     Dosage: 1 DOSAGE FORMS DAILY;
     Route: 048
     Dates: start: 20120101, end: 20131030
  6. XANAX 0.25 MG [Concomitant]
     Indication: BIPOLAR DISORDER
     Dosage: .25 MILLIGRAM DAILY;
     Route: 048
     Dates: start: 20120101, end: 20131030

REACTIONS (5)
  - Incorrect dose administered [Recovering/Resolving]
  - Electroencephalogram abnormal [Recovering/Resolving]
  - Bradyphrenia [Recovering/Resolving]
  - Bradykinesia [Recovering/Resolving]
  - Tremor [Recovering/Resolving]
